FAERS Safety Report 4450736-1 (Version None)
Quarter: 2004Q3

REPORT INFORMATION
  Report Type: 
  Country: None (occurrence: None)
  Receive Date: 20040914
  Receipt Date: 20040914
  Transmission Date: 20050211
  Serious: Yes (Other)
  Sender: FDA-Public Use
  Company Number: None

PATIENT
  Age: 30 Year
  Sex: Female
  Weight: 90.7194 kg

DRUGS (4)
  1. ZOLOFT [Suspect]
     Indication: ANXIETY
     Dosage: 50 MG EVERY OTHER DAY
     Dates: start: 20000901
  2. ZOLOFT [Suspect]
     Indication: DEPRESSION
     Dosage: 50 MG EVERY OTHER DAY
     Dates: start: 20000901
  3. ZOLOFT [Suspect]
     Indication: ANXIETY
     Dosage: 50 MG EVERY OTHER DAY
     Dates: start: 20040801
  4. ZOLOFT [Suspect]
     Indication: DEPRESSION
     Dosage: 50 MG EVERY OTHER DAY
     Dates: start: 20040801

REACTIONS (10)
  - CHILLS [None]
  - DRUG WITHDRAWAL SYNDROME [None]
  - HALLUCINATION, AUDITORY [None]
  - HALLUCINATION, VISUAL [None]
  - INCREASED APPETITE [None]
  - INFLUENZA LIKE ILLNESS [None]
  - NIGHTMARE [None]
  - PAIN [None]
  - STOMACH DISCOMFORT [None]
  - VISION BLURRED [None]
